FAERS Safety Report 17270162 (Version 3)
Quarter: 2020Q1

REPORT INFORMATION
  Report Type: Spontaneous
  Country: US (occurrence: US)
  Receive Date: 20200114
  Receipt Date: 20200213
  Transmission Date: 20200409
  Serious: Yes (Other)
  Sender: FDA-Public Use
  Company Number: US-PFIZER INC-2020014319

PATIENT
  Age: 34 Year
  Sex: Male
  Weight: 101 kg

DRUGS (2)
  1. PROTONIX [Suspect]
     Active Substance: PANTOPRAZOLE SODIUM
     Indication: GASTROOESOPHAGEAL REFLUX DISEASE
     Dosage: 40 MG, 1X/DAY
     Route: 048
     Dates: start: 20191128, end: 20191211
  2. PROTONIX [Suspect]
     Active Substance: PANTOPRAZOLE SODIUM
     Indication: GASTRITIS

REACTIONS (13)
  - Asthenia [Not Recovered/Not Resolved]
  - Hot flush [Unknown]
  - Drug hypersensitivity [Unknown]
  - Arrhythmia [Not Recovered/Not Resolved]
  - Heart rate irregular [Unknown]
  - Anxiety [Unknown]
  - Dyspnoea [Unknown]
  - Loss of consciousness [Unknown]
  - Palpitations [Recovered/Resolved]
  - Blood pressure increased [Unknown]
  - Gastrointestinal motility disorder [Unknown]
  - Muscular weakness [Unknown]
  - Chest discomfort [Unknown]

NARRATIVE: CASE EVENT DATE: 2019
